FAERS Safety Report 4655169-0 (Version None)
Quarter: 2005Q2

REPORT INFORMATION
  Report Type: 
  Country: None (occurrence: None)
  Receive Date: 20050506
  Receipt Date: 20041105
  Transmission Date: 20051028
  Serious: Yes (Other)
  Sender: FDA-Public Use
  Company Number: US-GLAXOSMITHKLINE-A0533301A

PATIENT
  Sex: Female

DRUGS (1)
  1. PAXIL [Suspect]
     Indication: DEPRESSION
     Dosage: 40MG PER DAY
     Route: 048
     Dates: end: 20010401

REACTIONS (14)
  - BALANCE DISORDER [None]
  - CONFUSIONAL STATE [None]
  - CRYING [None]
  - DIZZINESS [None]
  - DRUG WITHDRAWAL SYNDROME [None]
  - FEELING ABNORMAL [None]
  - INSOMNIA [None]
  - IRRITABILITY [None]
  - MENTAL DISORDER [None]
  - NIGHTMARE [None]
  - SENSORY DISTURBANCE [None]
  - SUICIDAL IDEATION [None]
  - TINNITUS [None]
  - TREMOR [None]
